FAERS Safety Report 13089012 (Version 1)
Quarter: 2017Q1

REPORT INFORMATION
  Report Type: Spontaneous
  Country: US (occurrence: US)
  Receive Date: 20170104
  Receipt Date: 20170104
  Transmission Date: 20170428
  Serious: Yes (Life-Threatening, Hospitalization, Disabling)
  Sender: FDA-Public Use
  Company Number: None

PATIENT
  Age: 41 Year
  Sex: Male
  Weight: 101.25 kg

DRUGS (3)
  1. LATUDA [Concomitant]
     Active Substance: LURASIDONE HYDROCHLORIDE
  2. KEPPRA XR [Concomitant]
     Active Substance: LEVETIRACETAM
  3. ABILIFY [Suspect]
     Active Substance: ARIPIPRAZOLE
     Indication: DEPRESSION
     Dosage: ?          QUANTITY:1 CAPSULE(S);?
     Route: 048
     Dates: start: 20130101, end: 20160331

REACTIONS (5)
  - Gambling disorder [None]
  - Seizure [None]
  - Compulsive shopping [None]
  - Libido increased [None]
  - Aggression [None]

NARRATIVE: CASE EVENT DATE: 20160107
